FAERS Safety Report 6955296-9 (Version None)
Quarter: 2010Q3

REPORT INFORMATION
  Report Type: 
  Country: None (occurrence: None)
  Receive Date: 20100830
  Receipt Date: 20100818
  Transmission Date: 20110219
  Serious: Yes (Hospitalization)
  Sender: FDA-Public Use
  Company Number: PHHY2010US55431

PATIENT
  Sex: Male

DRUGS (1)
  1. FANAPT [Suspect]
     Indication: SCHIZOPHRENIA
     Dosage: 6 MG, BID
     Route: 048
     Dates: start: 20100809, end: 20100812

REACTIONS (1)
  - TIC [None]
